FAERS Safety Report 7746884-0 (Version None)
Quarter: 2011Q3

REPORT INFORMATION
  Report Type: 
  Country: None (occurrence: None)
  Receive Date: 20110913
  Receipt Date: 20110905
  Transmission Date: 20111222
  Serious: Yes (Other)
  Sender: FDA-Public Use
  Company Number: JP-JNJFOC-20110700621

PATIENT
  Sex: Female

DRUGS (7)
  1. REMICADE [Suspect]
     Dosage: 29 TOTAL INFUSIONS
     Route: 042
     Dates: start: 20110723
  2. REMICADE [Suspect]
     Indication: CROHN'S DISEASE
     Dosage: 1ST DOSE
     Route: 042
     Dates: start: 20061005
  3. REMICADE [Suspect]
     Dosage: 27TH DOSE OF INFLIXIMAB, RECOMBINANT
     Route: 042
     Dates: start: 20110205
  4. ACETAMINOPHEN [Concomitant]
     Indication: PROPHYLAXIS
     Dosage: 600DF
     Route: 048
     Dates: start: 20061001
  5. PENTASA [Concomitant]
     Indication: CROHN'S DISEASE
     Route: 048
     Dates: start: 20061001
  6. REMICADE [Suspect]
     Dosage: 28TH DOSE
     Route: 042
     Dates: start: 20110528
  7. CLEMASTINE FUMARATE [Concomitant]
     Indication: PROPHYLAXIS
     Dosage: 2 MG
     Route: 048
     Dates: start: 20061001

REACTIONS (1)
  - PLATELET AGGREGATION [None]
